FAERS Safety Report 5008044-6 (Version None)
Quarter: 2006Q2

REPORT INFORMATION
  Report Type: 
  Country: None (occurrence: None)
  Receive Date: 20060331
  Receipt Date: 20050210
  Transmission Date: 20061013
  Serious: Yes (Hospitalization)
  Sender: FDA-Public Use
  Company Number: US113078

PATIENT
  Age: 82 Year
  Sex: Male

DRUGS (6)
  1. NEULASTA [Suspect]
     Indication: CHEMOTHERAPY
     Dosage: 6 MG, 1 IN 1 DAYS, SC
     Route: 058
     Dates: start: 20041119
  2. RITUXIMAB [Concomitant]
  3. CYCLOPHOSPHAMIDE [Concomitant]
  4. MITOXANTRONE HYDROCHLORIDE [Concomitant]
  5. VINCRISTINE SULFATE [Concomitant]
  6. PREDNISONE TAB [Concomitant]

REACTIONS (5)
  - ASTHENIA [None]
  - COUGH [None]
  - FEBRILE NEUTROPENIA [None]
  - POLLAKIURIA [None]
  - RESPIRATORY TRACT CONGESTION [None]
